FAERS Safety Report 25171433 (Version 1)
Quarter: 2025Q2

REPORT INFORMATION
  Report Type: Spontaneous
  Country: CN (occurrence: CN)
  Receive Date: 20250408
  Receipt Date: 20250408
  Transmission Date: 20250717
  Serious: Yes (Hospitalization)
  Sender: ROCHE
  Company Number: CN-ROCHE-10000245941

PATIENT
  Age: 61 Year
  Sex: Female
  Weight: 52 kg

DRUGS (4)
  1. ROZLYTREK [Suspect]
     Active Substance: ENTRECTINIB
     Indication: Bile duct cancer
     Route: 048
     Dates: start: 20241209, end: 20250305
  2. ROZLYTREK [Suspect]
     Active Substance: ENTRECTINIB
     Indication: Colon cancer
  3. ROZLYTREK [Suspect]
     Active Substance: ENTRECTINIB
     Indication: Hepatic cancer
  4. ROZLYTREK [Suspect]
     Active Substance: ENTRECTINIB
     Indication: Lung neoplasm malignant

REACTIONS (1)
  - Myelosuppression [Recovering/Resolving]

NARRATIVE: CASE EVENT DATE: 20250305
